FAERS Safety Report 4448575-0 (Version None)
Quarter: 2004Q3

REPORT INFORMATION
  Report Type: 
  Country: None (occurrence: None)
  Receive Date: 20040730
  Receipt Date: 20031211
  Transmission Date: 20050211
  Serious: Yes (Life-Threatening, Hospitalization)
  Sender: FDA-Public Use
  Company Number: 2003-12-1137

PATIENT
  Age: 51 Year
  Sex: Male
  Weight: 136.0791 kg

DRUGS (5)
  1. INTRON A [Suspect]
     Indication: METASTATIC RENAL CELL CARCINOMA
     Dosage: 10 MIU TIW SUBCUTANEOUS
     Route: 058
     Dates: start: 20020528, end: 20031201
  2. ALLOPURINOL [Suspect]
     Dosage: ORAL
     Route: 048
     Dates: start: 20031201, end: 20031201
  3. COMBIVENT [Concomitant]
  4. ADVAIR (SALMETEROL/FLUTICASONE) [Concomitant]
  5. VICODIN [Concomitant]

REACTIONS (4)
  - ANAEMIA [None]
  - ASTHENIA [None]
  - PLATELET COUNT DECREASED [None]
  - WHITE BLOOD CELL COUNT DECREASED [None]
